FAERS Safety Report 7884796-2 (Version None)
Quarter: 2011Q4

REPORT INFORMATION
  Report Type: 
  Country: None (occurrence: None)
  Receive Date: 20111102
  Receipt Date: 20111027
  Transmission Date: 20120403
  Serious: Yes (Hospitalization)
  Sender: FDA-Public Use
  Company Number: GXBR2011US04944

PATIENT
  Sex: Male
  Weight: 47.166 kg

DRUGS (1)
  1. OMNITROPE [Suspect]
     Indication: GROWTH HORMONE DEFICIENCY
     Dosage: 1 MG, QD
     Route: 058
     Dates: start: 20110801, end: 20111024

REACTIONS (6)
  - PAPILLOEDEMA [None]
  - BENIGN INTRACRANIAL HYPERTENSION [None]
  - MUSCULOSKELETAL STIFFNESS [None]
  - CEREBELLAR INFARCTION [None]
  - HEADACHE [None]
  - CEREBROVASCULAR ACCIDENT [None]
